FAERS Safety Report 10155883 (Version 2)
Quarter: 2014Q2

REPORT INFORMATION
  Report Type: Spontaneous
  Country: US (occurrence: US)
  Receive Date: 20140506
  Receipt Date: 20140619
  Transmission Date: 20141212
  Serious: Yes (Other)
  Sender: FDA-Public Use
  Company Number: US-ASTRAZENECA-2014SE29010

PATIENT
  Age: 84 Year
  Sex: Female
  Weight: 51.7 kg

DRUGS (7)
  1. SYMBICORT [Suspect]
     Dosage: 160/4.5, 320 MCG, BID
     Route: 055
     Dates: start: 201404, end: 20140428
  2. OMEPRAZOLE [Suspect]
     Route: 048
     Dates: start: 201308
  3. SPIRIVA [Concomitant]
     Indication: LUNG DISORDER
  4. PREMARIN [Concomitant]
  5. CLONIDINE [Concomitant]
  6. LASIX [Concomitant]
  7. POTASSIUM [Concomitant]

REACTIONS (3)
  - Fall [Unknown]
  - Jaw fracture [Unknown]
  - Drug dose omission [Unknown]
